FAERS Safety Report 20933002 (Version 1)
Quarter: 2022Q2

REPORT INFORMATION
  Report Type: Spontaneous
  Country: US (occurrence: US)
  Receive Date: 20220608
  Receipt Date: 20220608
  Transmission Date: 20220721
  Serious: Yes (Other)
  Sender: FDA-Public Use
  Company Number: US-REGENERON PHARMACEUTICALS, INC.-2022-31927

PATIENT
  Sex: Female

DRUGS (3)
  1. EYLEA [Suspect]
     Active Substance: AFLIBERCEPT
     Indication: Choroidal neovascularisation
     Dosage: UNK, RIGHT EYE
     Route: 031
  2. EYLEA [Suspect]
     Active Substance: AFLIBERCEPT
     Dosage: LEFT EYE, UNK
  3. AVASTIN [Suspect]
     Active Substance: BEVACIZUMAB
     Indication: Product used for unknown indication
     Dosage: UNK, LEFT EYE
     Dates: end: 20190422

REACTIONS (5)
  - Uveitis [Unknown]
  - Wrong technique in product usage process [Unknown]
  - Intercepted product preparation error [Unknown]
  - Off label use [Unknown]
  - Lacrimation increased [Unknown]
